FAERS Safety Report 15558076 (Version 1)
Quarter: 2018Q4

REPORT INFORMATION
  Report Type: Spontaneous
  Country: US (occurrence: US)
  Receive Date: 20181027
  Receipt Date: 20181027
  Transmission Date: 20190205
  Serious: No
  Sender: FDA-Public Use
  Company Number: US-009507513-1810USA010722

PATIENT
  Sex: Male

DRUGS (1)
  1. PREGNYL [Suspect]
     Active Substance: CHORIOGONADOTROPIN ALFA
     Indication: BLOOD TESTOSTERONE DECREASED
     Dosage: STRENGTH: 10(UNITS UNKNOWN), ONE HALF, TWICE WEEKLY
     Route: 058
     Dates: start: 201807

REACTIONS (3)
  - Adverse reaction [Not Recovered/Not Resolved]
  - Product dose omission [Unknown]
  - Incorrect dose administered [Unknown]

NARRATIVE: CASE EVENT DATE: 2018
